FAERS Safety Report 26121272 (Version 1)
Quarter: 2025Q4

REPORT INFORMATION
  Report Type: Spontaneous
  Country: AU (occurrence: AU)
  Receive Date: 20251204
  Receipt Date: 20251204
  Transmission Date: 20260118
  Serious: Yes (Other)
  Sender: DR REDDYS
  Company Number: AU-AUS-AUS/2025/11/018210

PATIENT
  Age: 50 Year
  Sex: Female

DRUGS (1)
  1. DASATINIB [Suspect]
     Active Substance: DASATINIB
     Indication: Product used for unknown indication

REACTIONS (11)
  - Malignant melanoma [Unknown]
  - Alopecia [Unknown]
  - Anaemia [Unknown]
  - Bone pain [Unknown]
  - Brain fog [Unknown]
  - Dry skin [Unknown]
  - Fatigue [Unknown]
  - Hypomenorrhoea [Unknown]
  - Nasopharyngitis [Unknown]
  - Palpitations [Unknown]
  - Rash [Unknown]
